FAERS Safety Report 4383566-X (Version None)
Quarter: 2004Q2

REPORT INFORMATION
  Report Type: 
  Country: None (occurrence: None)
  Receive Date: 20040614
  Receipt Date: 20030418
  Transmission Date: 20050107
  Serious: Yes (Other)
  Sender: FDA-Public Use
  Company Number: 2003151602US

PATIENT
  Age: 42 Year
  Sex: Male

DRUGS (3)
  1. ZYVOX [Suspect]
     Indication: ENTEROCOCCAL BACTERAEMIA
     Dosage: 600 MG, BID, ORAL
     Route: 048
     Dates: start: 20020801
  2. METOPROLOL [Concomitant]
  3. TYLENOL W/ CODEINE [Concomitant]

REACTIONS (1)
  - NEUROPATHY PERIPHERAL [None]
